FAERS Safety Report 15621162 (Version 3)
Quarter: 2018Q4

REPORT INFORMATION
  Report Type: Spontaneous
  Country: JP (occurrence: JP)
  Receive Date: 20181115
  Receipt Date: 20181130
  Transmission Date: 20190205
  Serious: Yes (Life-Threatening)
  Sender: FDA-Public Use
  Company Number: JP-HQ SPECIALTY-JP-2018INT000228

PATIENT
  Age: 44 Year
  Sex: Female

DRUGS (17)
  1. MOSAPRIDE CITRATE [Suspect]
     Active Substance: MOSAPRIDE CITRATE
     Indication: ENCEPHALITIS AUTOIMMUNE
     Dosage: 15 MG,1 D
     Route: 065
  2. DEXMEDETOMIDINE HYDROCHLORIDE. [Suspect]
     Active Substance: DEXMEDETOMIDINE HYDROCHLORIDE
     Indication: ENCEPHALITIS AUTOIMMUNE
     Dosage: 0.5-0.7 UG/KG/H
     Route: 065
  3. LEVETIRACETAM. [Suspect]
     Active Substance: LEVETIRACETAM
     Indication: FOCAL DYSCOGNITIVE SEIZURES
     Dosage: 3000 MG,1 D
     Route: 065
  4. ESOMEPRAZOLE. [Suspect]
     Active Substance: ESOMEPRAZOLE MAGNESIUM
     Indication: ENCEPHALITIS AUTOIMMUNE
     Dosage: 20 MG, 1 D
     Route: 065
  5. FENTANYL. [Suspect]
     Active Substance: FENTANYL
     Indication: ENCEPHALITIS AUTOIMMUNE
     Dosage: 0.07 MG, 1 HR
     Route: 065
  6. EDOXABAN [Suspect]
     Active Substance: EDOXABAN TOSYLATE
     Indication: ENCEPHALITIS AUTOIMMUNE
     Dosage: 30 MG, 1 D
     Route: 065
  7. METHYLPREDNISOLONE. [Suspect]
     Active Substance: METHYLPREDNISOLONE
     Indication: ENCEPHALITIS AUTOIMMUNE
     Dosage: FOR 3 DAYS EVERY WEEK, FOR 4 TIMES (1 GM,1 D)
     Route: 065
  8. HUMAN NORMAL IMMUNOGLOBULIN [Suspect]
     Active Substance: HUMAN IMMUNOGLOBULIN G
     Indication: ENCEPHALITIS AUTOIMMUNE
     Dosage: FOR 5 DAYS ON DAY 4 (0.4 GRAM PER KILOGRAM,1 D)
     Route: 042
  9. LACOSAMIDE. [Suspect]
     Active Substance: LACOSAMIDE
     Indication: FOCAL DYSCOGNITIVE SEIZURES
     Dosage: 100 MG, 1 D
     Route: 065
  10. ACYCLOVIR                          /00587301/ [Suspect]
     Active Substance: ACYCLOVIR
     Indication: MENINGOENCEPHALITIS HERPETIC
     Dosage: 10 MG/KG, 1 D
     Route: 065
  11. BROTIZOLAM [Suspect]
     Active Substance: BROTIZOLAM
     Indication: ENCEPHALITIS AUTOIMMUNE
     Dosage: 0.25 MG, 1 D
     Route: 065
  12. AMPICILLIN AND SULBACTAM [Suspect]
     Active Substance: AMPICILLIN SODIUM\SULBACTAM SODIUM
     Indication: ENCEPHALITIS AUTOIMMUNE
     Dosage: 3 GM,1 D
     Route: 065
  13. QUETIAPINE FUMARATE. [Suspect]
     Active Substance: QUETIAPINE FUMARATE
     Indication: ENCEPHALITIS AUTOIMMUNE
     Dosage: 12.5-25MG/DAY
     Route: 065
  14. HALOPERIDOL. [Suspect]
     Active Substance: HALOPERIDOL
     Indication: ENCEPHALITIS AUTOIMMUNE
     Dosage: 5-10 MG /DAY (1 D)
     Route: 065
  15. RAMELTEON [Suspect]
     Active Substance: RAMELTEON
     Indication: ENCEPHALITIS AUTOIMMUNE
     Dosage: 8 MG, 1 D
     Route: 065
  16. LOXOPROFEN [Suspect]
     Active Substance: LOXOPROFEN
     Indication: ENCEPHALITIS AUTOIMMUNE
     Dosage: 60 MG, 1 D
     Route: 065
  17. PROPOFOL. [Suspect]
     Active Substance: PROPOFOL
     Indication: FOCAL DYSCOGNITIVE SEIZURES
     Dosage: 100-150 MG/H
     Route: 065

REACTIONS (2)
  - Drug interaction [Unknown]
  - Toxic epidermal necrolysis [Recovering/Resolving]
